FAERS Safety Report 6201922-1 (Version None)
Quarter: 2009Q2

REPORT INFORMATION
  Report Type: 
  Country: None (occurrence: None)
  Receive Date: 20090526
  Receipt Date: 20090521
  Transmission Date: 20091009
  Serious: Yes (Death)
  Sender: FDA-Public Use
  Company Number: PHHY2009JP01761

PATIENT
  Sex: Female
  Weight: 34.9 kg

DRUGS (1)
  1. DIOVAN T30230+TAB+HY [Suspect]
     Indication: HYPERTENSION
     Dosage: 80 MG DAILY
     Route: 048
     Dates: start: 20080409, end: 20080827

REACTIONS (1)
  - DEATH [None]
